FAERS Safety Report 5242230-5 (Version None)
Quarter: 2007Q1

REPORT INFORMATION
  Report Type: 
  Country: None (occurrence: None)
  Receive Date: 20070215
  Receipt Date: 20070215
  Transmission Date: 20070707
  Serious: Yes (Other)
  Sender: FDA-Public Use
  Company Number: None

PATIENT
  Age: 63 Year
  Sex: Female
  Weight: 78.9259 kg

DRUGS (2)
  1. PERFLUTREN 0.75/1 ML [Suspect]
     Indication: CARDIAC DISORDER
     Dosage: 1.5 ML ONCE IV
     Route: 042
     Dates: start: 20070208, end: 20070208
  2. PERFLUTREN 0.75/1 ML [Suspect]
     Indication: DIAGNOSTIC PROCEDURE
     Dosage: 1.5 ML ONCE IV
     Route: 042
     Dates: start: 20070208, end: 20070208

REACTIONS (3)
  - ANXIETY [None]
  - BACK PAIN [None]
  - PAIN IN EXTREMITY [None]
